FAERS Safety Report 19452995 (Version 17)
Quarter: 2024Q3

REPORT INFORMATION
  Report Type: Spontaneous
  Country: US (occurrence: US)
  Receive Date: 20210623
  Receipt Date: 20240730
  Transmission Date: 20241017
  Serious: Yes (Other)
  Sender: PFIZER
  Company Number: US-PFIZER INC-2021601832

PATIENT
  Age: 83 Year
  Sex: Male
  Weight: 100.7 kg

DRUGS (5)
  1. BOSULIF [Suspect]
     Active Substance: BOSUTINIB MONOHYDRATE
     Indication: Chronic myeloid leukaemia
     Dosage: 500 MG
     Dates: start: 20210325
  2. BOSULIF [Suspect]
     Active Substance: BOSUTINIB MONOHYDRATE
     Indication: Prostate cancer
     Dosage: 500 MG
     Dates: start: 20210414
  3. BOSULIF [Suspect]
     Active Substance: BOSUTINIB MONOHYDRATE
     Dosage: 300 MG
     Dates: start: 20211118
  4. BOSULIF [Suspect]
     Active Substance: BOSUTINIB MONOHYDRATE
     Dosage: 100 MG
  5. BOSULIF [Suspect]
     Active Substance: BOSUTINIB MONOHYDRATE
     Dosage: TAKE 3 TAB (300 MG) BY MOUTH ONCE DAILY. SHOULD BE TAKEN WITH FOOD
     Route: 048

REACTIONS (10)
  - Gait disturbance [Unknown]
  - Diarrhoea [Not Recovered/Not Resolved]
  - Rash [Unknown]
  - Eating disorder [Recovering/Resolving]
  - Food aversion [Recovering/Resolving]
  - Dysgeusia [Recovering/Resolving]
  - Asthenia [Unknown]
  - Decreased appetite [Unknown]
  - Pain [Unknown]
  - Constipation [Unknown]

NARRATIVE: CASE EVENT DATE: 20210326
